FAERS Safety Report 10367065 (Version 2)
Quarter: 2014Q3

REPORT INFORMATION
  Report Type: Spontaneous
  Country: US (occurrence: US)
  Receive Date: 20140807
  Receipt Date: 20140807
  Transmission Date: 20150326
  Serious: Yes (Other)
  Sender: FDA-Public Use
  Company Number: US-ROCHE-1442059

PATIENT
  Sex: Female

DRUGS (1)
  1. KADCYLA [Suspect]
     Active Substance: ADO-TRASTUZUMAB EMTANSINE
     Indication: PRODUCT USED FOR UNKNOWN INDICATION
     Route: 065

REACTIONS (5)
  - Platelet count decreased [Recovered/Resolved]
  - Nodular regenerative hyperplasia [Recovered/Resolved]
  - Hepatic enzyme increased [Recovered/Resolved]
  - Oesophageal varices haemorrhage [Recovered/Resolved]
  - Portal hypertension [Recovered/Resolved]
